FAERS Safety Report 9404063 (Version 1)
Quarter: 2013Q3

REPORT INFORMATION
  Report Type: Spontaneous
  Country: AU (occurrence: None)
  Receive Date: 20130711
  Receipt Date: 20130711
  Transmission Date: 20140515
  Serious: Yes (Death)
  Sender: FDA-Public Use
  Company Number: 2013P1011317

PATIENT
  Sex: 0

DRUGS (1)
  1. ZOLPIDEM [Suspect]

REACTIONS (2)
  - Completed suicide [None]
  - Toxicity to various agents [None]
